FAERS Safety Report 4450228-X (Version None)
Quarter: 2004Q3

REPORT INFORMATION
  Report Type: 
  Country: None (occurrence: None)
  Receive Date: 20040914
  Receipt Date: 20040831
  Transmission Date: 20050211
  Serious: Yes (Hospitalization)
  Sender: FDA-Public Use
  Company Number: F03200400078

PATIENT
  Age: 52 Year
  Sex: Female

DRUGS (6)
  1. ELOXATIN [Suspect]
     Indication: COLON CANCER
     Dosage: 85 MG/M2 Q2W- INTRAVENOUS NOS
     Route: 042
     Dates: start: 20000711, end: 20000711
  2. FLUOROURACIL [Suspect]
     Indication: COLON CANCER
     Dosage: 500 MG/M2 1/WEEK - INTRAVENOUS NOS
     Route: 042
     Dates: start: 20000711
  3. LEUCOVORIN 0SOLUTION - 500 MG/M2 [Suspect]
     Indication: COLON CANCER
     Dosage: 500 MG/M2 1/WEEK - INTRAVENOUS NOS
     Route: 042
     Dates: start: 20000711, end: 20000711
  4. CELECOXIB [Concomitant]
  5. ONDANSETRON HCL [Concomitant]
  6. DEXAMETHASONE [Concomitant]

REACTIONS (11)
  - ABDOMINAL PAIN [None]
  - ASCITES [None]
  - CHEST PAIN [None]
  - DIARRHOEA [None]
  - GENERALISED OEDEMA [None]
  - HAEMORRHAGE [None]
  - ILEUS [None]
  - INTERVERTEBRAL DISC PROTRUSION [None]
  - INTESTINAL ISCHAEMIA [None]
  - VOMITING [None]
  - WHITE BLOOD CELL COUNT DECREASED [None]
